FAERS Safety Report 6535832-7 (Version None)
Quarter: 2010Q1

REPORT INFORMATION
  Report Type: 
  Country: None (occurrence: None)
  Receive Date: 20100106
  Receipt Date: 20091222
  Transmission Date: 20100710
  Serious: Yes (Hospitalization)
  Sender: FDA-Public Use
  Company Number: DSA_42240_2009

PATIENT
  Sex: Male

DRUGS (6)
  1. XENAZINE [Suspect]
     Indication: CHOREA
     Dosage: (ORAL), (25 MG QD ORAL), (1/2 TABLET TWICE DAILY ORAL)
     Route: 048
     Dates: start: 20090101, end: 20090101
  2. XENAZINE [Suspect]
     Indication: DYSTONIA
     Dosage: (ORAL), (25 MG QD ORAL), (1/2 TABLET TWICE DAILY ORAL)
     Route: 048
     Dates: start: 20090101, end: 20090101
  3. XENAZINE [Suspect]
     Indication: CHOREA
     Dosage: (ORAL), (25 MG QD ORAL), (1/2 TABLET TWICE DAILY ORAL)
     Route: 048
     Dates: start: 20090101, end: 20090101
  4. XENAZINE [Suspect]
     Indication: DYSTONIA
     Dosage: (ORAL), (25 MG QD ORAL), (1/2 TABLET TWICE DAILY ORAL)
     Route: 048
     Dates: start: 20090101, end: 20090101
  5. XENAZINE [Suspect]
     Indication: CHOREA
     Dosage: (ORAL), (25 MG QD ORAL), (1/2 TABLET TWICE DAILY ORAL)
     Route: 048
     Dates: start: 20090101
  6. XENAZINE [Suspect]
     Indication: DYSTONIA
     Dosage: (ORAL), (25 MG QD ORAL), (1/2 TABLET TWICE DAILY ORAL)
     Route: 048
     Dates: start: 20090101

REACTIONS (2)
  - HYPOTENSION [None]
  - VIRAL INFECTION [None]
